FAERS Safety Report 10554542 (Version 1)
Quarter: 2014Q4

REPORT INFORMATION
  Report Type: Spontaneous
  Country: JP (occurrence: JP)
  Receive Date: 20141030
  Receipt Date: 20141030
  Transmission Date: 20150529
  Serious: Yes (Hospitalization)
  Sender: FDA-Public Use
  Company Number: JP-SA-2014SA146181

PATIENT
  Age: 35 Year
  Sex: Male
  Weight: 49.4 kg

DRUGS (13)
  1. BROTIZOLAM [Suspect]
     Active Substance: BROTIZOLAM
     Indication: SUICIDE ATTEMPT
     Dosage: 9 TABLETS
     Route: 048
     Dates: start: 201305, end: 201305
  2. LANTUS [Suspect]
     Active Substance: INSULIN GLARGINE
     Indication: SUICIDE ATTEMPT
     Route: 058
     Dates: start: 201305, end: 201305
  3. GLIMEPIRIDE. [Concomitant]
     Active Substance: GLIMEPIRIDE
     Dates: start: 2013
  4. METFORMIN HYDROCHLORIDE. [Concomitant]
     Active Substance: METFORMIN HYDROCHLORIDE
     Dates: start: 2013
  5. LANTUS [Suspect]
     Active Substance: INSULIN GLARGINE
     Indication: DIABETES MELLITUS
     Dosage: BEFORE BREAKFAST DOSE:20 UNIT(S)
     Route: 065
     Dates: start: 2013
  6. INSULIN LISPRO [Concomitant]
     Active Substance: INSULIN LISPRO
     Indication: DIABETES MELLITUS
     Dosage: IMMEDIATELY BEFORE EACH MEAL DOSE:4 UNIT(S)
     Dates: start: 2013
  7. TANDOSPIRONE [Concomitant]
     Active Substance: TANDOSPIRONE
     Indication: MAJOR DEPRESSION
  8. INSULIN [Concomitant]
     Active Substance: INSULIN NOS
     Indication: DIABETES MELLITUS
     Dates: start: 2009
  9. LANTUS [Suspect]
     Active Substance: INSULIN GLARGINE
     Indication: SUICIDE ATTEMPT
     Dosage: BEFORE BREAKFAST DOSE:20 UNIT(S)
     Route: 065
     Dates: start: 2013
  10. SERTRALINE [Concomitant]
     Active Substance: SERTRALINE HYDROCHLORIDE
     Indication: MAJOR DEPRESSION
  11. SULPIRIDE [Concomitant]
     Active Substance: SULPIRIDE
     Indication: MAJOR DEPRESSION
  12. LANTUS [Suspect]
     Active Substance: INSULIN GLARGINE
     Indication: DIABETES MELLITUS
     Route: 058
     Dates: start: 201305, end: 201305
  13. SETIPTILINE [Concomitant]
     Active Substance: SETIPTILINE
     Indication: MAJOR DEPRESSION

REACTIONS (8)
  - Injection site swelling [Unknown]
  - Respiratory rate increased [Unknown]
  - Intentional overdose [Unknown]
  - Depressed level of consciousness [Recovered/Resolved]
  - Suicide attempt [Unknown]
  - Body temperature decreased [Unknown]
  - Blood pressure decreased [Unknown]
  - Hypoglycaemia [Recovered/Resolved]

NARRATIVE: CASE EVENT DATE: 201305
